FAERS Safety Report 19869666 (Version 1)
Quarter: 2021Q3

REPORT INFORMATION
  Report Type: Spontaneous
  Country: US (occurrence: US)
  Receive Date: 20210922
  Receipt Date: 20210922
  Transmission Date: 20211014
  Serious: No
  Sender: FDA-Public Use
  Company Number: US-BAYER-2021A214905

PATIENT
  Age: 47 Year
  Sex: Female

DRUGS (1)
  1. KYLEENA [Suspect]
     Active Substance: LEVONORGESTREL
     Dosage: 17.5 ?G, CONT
     Route: 015
     Dates: start: 20210915, end: 20210915

REACTIONS (3)
  - Device issue [None]
  - Complication of device insertion [None]
  - Device use issue [None]

NARRATIVE: CASE EVENT DATE: 20210915
